FAERS Safety Report 18699201 (Version 2)
Quarter: 2022Q1

REPORT INFORMATION
  Report Type: Spontaneous
  Country: US (occurrence: US)
  Receive Date: 20210105
  Receipt Date: 20220309
  Transmission Date: 20220423
  Serious: Yes (Other)
  Sender: FDA-Public Use
  Company Number: None

PATIENT
  Age: 67 Year
  Sex: Male

DRUGS (1)
  1. OXYCODONE [Suspect]
     Active Substance: OXYCODONE
     Indication: Back pain
     Dosage: 30 MILLIGRAM, BID
     Route: 065

REACTIONS (3)
  - Constipation [Recovered/Resolved]
  - Oesophageal spasm [Recovered/Resolved]
  - Oesophageal motility disorder [Recovered/Resolved]
